FAERS Safety Report 7985744 (Version 7)
Quarter: 2013Q3

REPORT INFORMATION
  Report Type: Report from Study
  Country: FR (occurrence: FR)
  Receive Date: 20110610
  Receipt Date: 20130711
  Transmission Date: 20140515
  Serious: Yes (Disabling)
  Sender: FDA-Public Use
  Company Number: FR-ABBOTT-11P-056-0729698-00

PATIENT
  Age: 65 Year
  Sex: Female
  Weight: 74 kg

DRUGS (20)
  1. HUMIRA [Suspect]
     Indication: SPONDYLITIS
     Route: 058
     Dates: start: 20100520, end: 20110519
  2. HUMIRA [Suspect]
     Dates: start: 20110617
  3. MOBIC [Concomitant]
     Indication: SPONDYLITIS
     Dates: start: 20061109
  4. LEVOTHYROX [Concomitant]
     Indication: HYPOTHYROIDISM
  5. FLECAINE [Concomitant]
     Indication: ARRHYTHMIA
     Dates: start: 1990
  6. FLECAINE [Concomitant]
     Indication: ATRIAL FIBRILLATION
  7. VITAMIN C [Concomitant]
     Indication: ASTHENIA
     Dates: start: 20071001
  8. VITAMIN C [Concomitant]
     Indication: PROPHYLAXIS
  9. GAVISCON [Concomitant]
     Indication: DYSPHAGIA
     Dates: start: 20100622, end: 201009
  10. XYZALL [Concomitant]
     Indication: INJECTION SITE REACTION
     Dates: start: 20101007
  11. XYZALL [Concomitant]
     Indication: PROPHYLAXIS
  12. PARIET [Concomitant]
     Indication: HIATUS HERNIA
     Dates: start: 20101102
  13. TROPHICREME [Concomitant]
     Indication: VULVOVAGINAL DRYNESS
     Dosage: 0.1%
     Dates: start: 20110111, end: 20110424
  14. MONAZOL [Concomitant]
     Indication: VULVOVAGINAL MYCOTIC INFECTION
     Dates: start: 20110409, end: 20110409
  15. LANZOR [Concomitant]
     Indication: HIATUS HERNIA
     Dates: start: 1990, end: 20101101
  16. ESTRADERM [Concomitant]
     Indication: MENOPAUSE
     Dates: end: 20100908
  17. ESTRADERM [Concomitant]
     Indication: PROPHYLAXIS
  18. UTROGESTAN [Concomitant]
     Indication: MENOPAUSE
     Dates: end: 20100908
  19. UTROGESTAN [Concomitant]
     Indication: PROPHYLAXIS
  20. VOLTARENE [Concomitant]
     Indication: CONTUSION
     Dates: start: 20101210, end: 20101211

REACTIONS (1)
  - Macular degeneration [Not Recovered/Not Resolved]
